FAERS Safety Report 8216718-9 (Version None)
Quarter: 2012Q1

REPORT INFORMATION
  Report Type: 
  Country: None (occurrence: None)
  Receive Date: 20120316
  Receipt Date: 20120307
  Transmission Date: 20120608
  Serious: Yes (Other)
  Sender: FDA-Public Use
  Company Number: DE-ASTRAZENECA-2012SE16018

PATIENT

DRUGS (5)
  1. RAMIPRIL [Concomitant]
  2. BRILIQUE [Suspect]
     Route: 048
  3. METOPROLOL SUCCINATE [Concomitant]
  4. ASPIRIN [Concomitant]
     Indication: PLATELET AGGREGATION INHIBITION
  5. SIMVASTATIN [Concomitant]

REACTIONS (5)
  - CHEST DISCOMFORT [None]
  - C-REACTIVE PROTEIN INCREASED [None]
  - DYSPNOEA [None]
  - TACHYCARDIA [None]
  - TROPONIN INCREASED [None]
